FAERS Safety Report 8248197 (Version 6)
Quarter: 2018Q2

REPORT INFORMATION
  Report Type: Report from Study
  Country: JP (occurrence: JP)
  Receive Date: 20111117
  Receipt Date: 20180423
  Transmission Date: 20180711
  Serious: Yes (Death, Hospitalization, Other)
  Sender: FDA-Public Use
  Company Number: JP-AMGEN-JPNCT2011060226

PATIENT
  Age: 60 Year
  Sex: Male
  Weight: 57 kg

DRUGS (4)
  1. METILDIGOXIN [Concomitant]
     Active Substance: METILDIGOXIN
     Indication: DIABETES MELLITUS
     Route: 042
     Dates: start: 20100803
  2. PANITUMUMAB [Suspect]
     Active Substance: PANITUMUMAB
     Indication: COLORECTAL CANCER
     Dosage: 340 MG, Q2WK
     Route: 041
     Dates: start: 20110607, end: 20110719
  3. IRINOTECAN HYDROCHLORIDE. [Suspect]
     Active Substance: IRINOTECAN HYDROCHLORIDE
     Indication: COLORECTAL CANCER
     Route: 041
     Dates: start: 20110607, end: 20110719
  4. LOXOPROFEN SODIUM [Concomitant]
     Active Substance: LOXOPROFEN SODIUM
     Indication: PAIN
     Route: 048
     Dates: start: 20110301

REACTIONS (6)
  - Cough [Recovered/Resolved]
  - Dyspnoea [Recovered/Resolved]
  - Colon cancer [Fatal]
  - Interstitial lung disease [Recovered/Resolved]
  - Condition aggravated [Fatal]
  - Productive cough [Recovered/Resolved]

NARRATIVE: CASE EVENT DATE: 20110724
